FAERS Safety Report 6025876-6 (Version None)
Quarter: 2008Q4

REPORT INFORMATION
  Report Type: 
  Country: None (occurrence: None)
  Receive Date: 20081222
  Receipt Date: 20081215
  Transmission Date: 20090506
  Serious: Yes (Other)
  Sender: FDA-Public Use
  Company Number: 200814455

PATIENT
  Sex: Female

DRUGS (1)
  1. VIVAGLOBIN [Suspect]

REACTIONS (1)
  - MENINGITIS ASEPTIC [None]
